FAERS Safety Report 9104193 (Version 1)
Quarter: 2013Q1

REPORT INFORMATION
  Report Type: Spontaneous
  Country: GB (occurrence: GB)
  Receive Date: 20130219
  Receipt Date: 20130219
  Transmission Date: 20140127
  Serious: Yes (Other)
  Sender: FDA-Public Use
  Company Number: GB-PFIZER INC-2013057577

PATIENT
  Age: 53 Year
  Sex: Female
  Weight: 57 kg

DRUGS (9)
  1. CHLORAMPHENICOL SODIUM SUCCINATE [Suspect]
     Indication: EYE INFLAMMATION
     Dates: start: 20130128
  2. METHOTREXATE [Concomitant]
     Dates: start: 20121114
  3. FOLIC ACID [Concomitant]
     Dates: start: 20121210, end: 20130107
  4. FOLIC ACID [Concomitant]
     Dates: start: 20130122
  5. ACICLOVIR [Concomitant]
     Dates: start: 20121218, end: 20121223
  6. BETAMETHASONE VALERATE [Concomitant]
     Dates: start: 20121218, end: 20121225
  7. FUSIDIC ACID [Concomitant]
     Dates: start: 20130125
  8. CARMELLOSE SODIUM [Concomitant]
     Dates: start: 20130128
  9. TOBRAMYCIN [Concomitant]
     Dates: start: 20130130

REACTIONS (2)
  - Eye inflammation [Recovering/Resolving]
  - Condition aggravated [Recovering/Resolving]
